FAERS Safety Report 8481046-3 (Version None)
Quarter: 2012Q3

REPORT INFORMATION
  Report Type: 
  Country: None (occurrence: None)
  Receive Date: 20120702
  Receipt Date: 20120622
  Transmission Date: 20120928
  Serious: Yes (Other)
  Sender: FDA-Public Use
  Company Number: PHEH2012US005679

PATIENT
  Sex: Male

DRUGS (13)
  1. TRAZODONE HCL [Concomitant]
     Dosage: 100 MG, UNK
  2. MILK OF MAGNESIA TAB [Concomitant]
  3. PANTOPRAZOLE [Concomitant]
  4. LIPITOR [Concomitant]
     Dosage: 10 MG, UNK
  5. OXYCODONE HCL [Concomitant]
     Dosage: 10 MG, UNK
  6. VICODIN [Concomitant]
     Dosage: 5 TO 500 MG
  7. VITAMIN D [Concomitant]
     Dosage: 50000 U, UNK
  8. GLEEVEC [Suspect]
     Dosage: 400 MG, DAILY
     Route: 048
  9. ASPIRIN [Concomitant]
     Dosage: 81 MG, UNK
  10. ALLOPURINOL [Concomitant]
     Dosage: 100 MG, UNK
  11. METAMUCIL-2 [Concomitant]
     Dosage: 0.52 G, UNK
  12. LISINOPRIL AND HYDROCHLOROTHIAZIDE [Concomitant]
  13. ATORVASTATIN [Concomitant]

REACTIONS (7)
  - VESICAL FISTULA [None]
  - FOREIGN BODY [None]
  - CANDIDIASIS [None]
  - GASTROINTESTINAL FISTULA [None]
  - VOMITING [None]
  - NAUSEA [None]
  - DIVERTICULITIS [None]
